FAERS Safety Report 5168938-8 (Version None)
Quarter: 2006Q4

REPORT INFORMATION
  Report Type: 
  Country: None (occurrence: None)
  Receive Date: 20061211
  Receipt Date: 20061120
  Transmission Date: 20070319
  Serious: Yes (Hospitalization)
  Sender: FDA-Public Use
  Company Number: JP-BRISTOL-MYERS SQUIBB COMPANY-13587654

PATIENT
  Age: 35 Year
  Sex: Male

DRUGS (16)
  1. GATIFLO TABS [Suspect]
     Indication: UPPER RESPIRATORY TRACT INFLAMMATION
     Route: 048
     Dates: start: 20061107, end: 20061107
  2. DALACIN-S [Suspect]
     Route: 041
     Dates: start: 20061107, end: 20061107
  3. SOLITA-T [Concomitant]
     Route: 041
     Dates: start: 20061107, end: 20061107
  4. FURSULTIAMINE [Concomitant]
     Dates: start: 20061107, end: 20061107
  5. OBELON [Concomitant]
     Route: 030
     Dates: start: 20061107, end: 20061107
  6. ANTOBRON [Concomitant]
     Route: 048
     Dates: start: 20061107, end: 20061107
  7. TRANSAMIN [Concomitant]
     Route: 048
     Dates: start: 20061107, end: 20061107
  8. ACETAMINOPHEN [Concomitant]
     Route: 048
     Dates: start: 20061107, end: 20061107
  9. ASTOMIN [Concomitant]
     Route: 048
     Dates: start: 20061107, end: 20061107
  10. COLD REMEDY [Concomitant]
     Indication: NASOPHARYNGITIS
     Route: 048
     Dates: start: 20061107, end: 20061107
  11. MARZULENE-S [Concomitant]
     Route: 048
     Dates: start: 20061107, end: 20061107
  12. DIOVAN [Concomitant]
     Route: 048
     Dates: end: 20061107
  13. ZESULAN [Concomitant]
     Route: 048
  14. MERCAZOLE [Concomitant]
  15. PINDOLOL [Concomitant]
     Route: 048
  16. ZYRTEC [Concomitant]
     Route: 048

REACTIONS (4)
  - COUGH [None]
  - MUCOSAL INFLAMMATION [None]
  - PYREXIA [None]
  - RASH GENERALISED [None]
